FAERS Safety Report 8550387-3 (Version None)
Quarter: 2012Q3

REPORT INFORMATION
  Report Type: 
  Country: None (occurrence: None)
  Receive Date: 20120718
  Receipt Date: 20120703
  Transmission Date: 20120928
  Serious: Yes (Other)
  Sender: FDA-Public Use
  Company Number: CIP11001627

PATIENT
  Age: 59 Year
  Sex: Female
  Weight: 84.1 kg

DRUGS (15)
  1. PREDNISONE TAB [Concomitant]
  2. ALENDRONATE SODIUM [Suspect]
     Indication: OSTEOPOROSIS PROPHYLAXIS
     Dosage: 70 MG, ORAL
     Route: 048
     Dates: end: 19980101
  3. ALENDRONATE SODIUM [Suspect]
     Indication: OSTEOPOROSIS PROPHYLAXIS
     Dosage: 70 MG, ORAL
     Route: 048
     Dates: start: 20080218, end: 20110201
  4. VITAMIN D [Concomitant]
  5. DECARDON /00016001/ (DEXAMETHASONE) [Concomitant]
  6. MULTIVITAMIN /00831701/ (VITAMINS NOS) [Concomitant]
  7. FOSAMAX [Suspect]
     Indication: OSTEOPOROSIS PROPHYLAXIS
     Dosage: 70 MG WEEKLY, ORAL; ORAL
     Route: 048
     Dates: start: 20010831, end: 20080101
  8. WARFARIN SODIUM [Concomitant]
  9. FLUORIDENT (SODIUM FLUORIDE) [Concomitant]
  10. ACTONEL [Suspect]
     Indication: OSTEOPOROSIS PROPHYLAXIS
     Dosage: 5 MG DAILY,ORAL
     Route: 048
     Dates: start: 20030501, end: 20040601
  11. CALCIUM CARBONATE [Concomitant]
  12. CELLSEPT (MYCOPHENOLATE MOFETIL) [Concomitant]
  13. FOSAMAX [Suspect]
     Indication: OSTEOPOROSIS PROPHYLAXIS
     Dosage: 10 MG, DAILY, ORAL; ORAL
     Route: 048
     Dates: start: 19980101, end: 19980201
  14. FOSAMAX [Suspect]
     Indication: OSTEOPOROSIS PROPHYLAXIS
     Dosage: 10 MG, DAILY, ORAL; ORAL
     Route: 048
     Dates: start: 19961203, end: 19971201
  15. PREVACID [Concomitant]

REACTIONS (25)
  - OSTEOMYELITIS CHRONIC [None]
  - DENTAL CARIES [None]
  - OSTEITIS [None]
  - SALIVARY HYPERSECRETION [None]
  - IMPAIRED HEALING [None]
  - LOOSE TOOTH [None]
  - GINGIVAL SWELLING [None]
  - ACTINOMYCOSIS [None]
  - DRY MOUTH [None]
  - TOOTHACHE [None]
  - ORAL DISCHARGE [None]
  - TOOTH DISCOLOURATION [None]
  - PRIMARY SEQUESTRUM [None]
  - BONE LOSS [None]
  - PERIODONTAL DISEASE [None]
  - OSTEONECROSIS OF JAW [None]
  - TOOTH FRACTURE [None]
  - ANGIOPATHY [None]
  - HYPOAESTHESIA ORAL [None]
  - TOOTH DISORDER [None]
  - ORAL DISORDER [None]
  - DENTAL PLAQUE [None]
  - INFLAMMATION [None]
  - SENSITIVITY OF TEETH [None]
  - GINGIVAL DISORDER [None]
